FAERS Safety Report 20120756 (Version 1)
Quarter: 2021Q4

REPORT INFORMATION
  Report Type: Other
  Country: CA (occurrence: CA)
  Receive Date: 20211126
  Receipt Date: 20211126
  Transmission Date: 20220303
  Serious: Yes (Other)
  Sender: FDA-Public Use
  Company Number: CA-CELLTRION INC.-2021CA015756

PATIENT

DRUGS (47)
  1. RITUXIMAB [Suspect]
     Active Substance: RITUXIMAB
     Indication: Immunoglobulin G4 related disease
     Dosage: 1000 MILLIGRAM
     Route: 042
  2. RITUXIMAB [Suspect]
     Active Substance: RITUXIMAB
     Indication: Rheumatoid arthritis
     Dosage: UNK
     Route: 065
  3. ACETAMINOPHEN [Concomitant]
     Active Substance: ACETAMINOPHEN
     Indication: Premedication
     Dosage: 650 MILLIGRAM
     Route: 048
  4. DIPHENHYDRAMINE [Concomitant]
     Active Substance: DIPHENHYDRAMINE
     Indication: Premedication
     Dosage: 100 MILLIGRAM
     Route: 042
  5. FAMOTIDINE [Concomitant]
     Active Substance: FAMOTIDINE
     Indication: Premedication
     Dosage: 20 MILLIGRAM
     Route: 042
  6. METHYLPREDNISOLONE [Concomitant]
     Active Substance: METHYLPREDNISOLONE
     Indication: Premedication
     Dosage: 100 MILLIGRAM
     Route: 042
  7. METOCLOPRAMIDE HYDROCHLORIDE [Concomitant]
     Active Substance: METOCLOPRAMIDE HYDROCHLORIDE
     Indication: Premedication
     Dosage: 5 MILLIGRAM
     Route: 042
  8. ACYCLOVIR [Concomitant]
     Active Substance: ACYCLOVIR
  9. ADVAIR HFA [Concomitant]
     Active Substance: FLUTICASONE PROPIONATE\SALMETEROL XINAFOATE
  10. AERIUS [Concomitant]
     Dosage: 50 MILLIGRAM
     Route: 048
  11. AERIUS [Concomitant]
     Dosage: 5 MILLIGRAM
     Route: 048
  12. AERIUS [Concomitant]
     Dosage: 5 MILLIGRAM
     Route: 048
  13. ALTEPLASE [Concomitant]
     Active Substance: ALTEPLASE
     Route: 065
  14. ATORVASTATIN [Concomitant]
     Active Substance: ATORVASTATIN
  15. BENADRYL [Concomitant]
     Active Substance: DIPHENHYDRAMINE HYDROCHLORIDE
     Dosage: 50 MILLIGRAM
     Route: 048
  16. BENADRYL [Concomitant]
     Active Substance: DIPHENHYDRAMINE HYDROCHLORIDE
     Dosage: 50 MILLIGRAM
     Route: 042
  17. BENADRYL [Concomitant]
     Active Substance: DIPHENHYDRAMINE HYDROCHLORIDE
     Dosage: 50 MILLIGRAM
     Route: 042
  18. BENADRYL [Concomitant]
     Active Substance: DIPHENHYDRAMINE HYDROCHLORIDE
     Dosage: 25 MILLIGRAM
     Route: 042
  19. BENADRYL [Concomitant]
     Active Substance: DIPHENHYDRAMINE HYDROCHLORIDE
     Dosage: 50 MG
     Route: 042
  20. BISACODYL [Concomitant]
     Active Substance: BISACODYL
  21. CARBOXYMETHYLCELLULOSE [Concomitant]
     Active Substance: CARBOXYMETHYLCELLULOSE
  22. COLACE [Concomitant]
     Active Substance: DOCUSATE SODIUM
  23. DALTEPARIN SODIUM [Concomitant]
     Active Substance: DALTEPARIN SODIUM
  24. DIMENHYDRINATE [Concomitant]
     Active Substance: DIMENHYDRINATE
     Dosage: 100 UNK
  25. ERYTHROMYCIN [Concomitant]
     Active Substance: ERYTHROMYCIN
  26. ESTRADIOL [Concomitant]
     Active Substance: ESTRADIOL
  27. FUROSEMIDE [Concomitant]
     Active Substance: FUROSEMIDE
     Route: 065
  28. GRAVOL [Concomitant]
     Active Substance: DIMENHYDRINATE
     Dosage: 75 MG
     Route: 042
  29. GRAVOL [Concomitant]
     Active Substance: DIMENHYDRINATE
     Dosage: 50 MILLIGRAM
     Route: 042
  30. GRAVOL [Concomitant]
     Active Substance: DIMENHYDRINATE
     Dosage: UNK
     Route: 042
  31. HYDROMORPHONE [Concomitant]
     Active Substance: HYDROMORPHONE
  32. LACTULOSE [Concomitant]
     Active Substance: LACTULOSE
  33. LEVOFLOXACIN [Concomitant]
     Active Substance: LEVOFLOXACIN
  34. LORAZEPAM [Concomitant]
     Active Substance: LORAZEPAM
  35. POLYETHYLENE GLYCOL 400\PROPYLENE GLYCOL [Concomitant]
     Active Substance: POLYETHYLENE GLYCOL 400\PROPYLENE GLYCOL
  36. METRONIDAZOLE [Concomitant]
     Active Substance: METRONIDAZOLE
  37. MIRTAZAPINE [Concomitant]
     Active Substance: MIRTAZAPINE
  38. MOMETASONE [Concomitant]
     Active Substance: MOMETASONE
  39. MONTELUKAST [Concomitant]
     Active Substance: MONTELUKAST SODIUM
  40. NALOXONE [Concomitant]
     Active Substance: NALOXONE
     Route: 065
  41. ONDANSETRON [Concomitant]
     Active Substance: ONDANSETRON
     Dosage: 8 MILLIGRAM
     Route: 048
  42. ONDANSETRON [Concomitant]
     Active Substance: ONDANSETRON
     Dosage: 8 MILLIGRAM
     Route: 048
  43. PANTOPRAZOLE [Concomitant]
     Active Substance: PANTOPRAZOLE
  44. PREDNISONE [Concomitant]
     Active Substance: PREDNISONE
  45. ALBUTEROL [Concomitant]
     Active Substance: ALBUTEROL
  46. SPIRONOLACTONE [Concomitant]
     Active Substance: SPIRONOLACTONE
  47. VALSARTAN [Concomitant]
     Active Substance: VALSARTAN

REACTIONS (8)
  - Weight increased [Recovered/Resolved]
  - Flushing [Recovered/Resolved]
  - Infusion related reaction [Recovered/Resolved]
  - Nausea [Recovered/Resolved]
  - Pruritus [Recovered/Resolved]
  - Intentional product use issue [Recovered/Resolved]
  - Off label use [Recovered/Resolved]
  - Off label use [Unknown]
